FAERS Safety Report 7056869-8 (Version None)
Quarter: 2010Q4

REPORT INFORMATION
  Report Type: 
  Country: None (occurrence: None)
  Receive Date: 20101022
  Receipt Date: 20101014
  Transmission Date: 20110411
  Serious: No
  Sender: FDA-Public Use
  Company Number: US-B.I. PHARMACEUTICALS,INC./RIDGEFIELD-2010-BP-11631BP

PATIENT
  Sex: Female

DRUGS (5)
  1. SPIRIVA [Suspect]
     Indication: CHRONIC OBSTRUCTIVE PULMONARY DISEASE
     Dosage: 18 MCG
     Route: 055
     Dates: start: 20090101, end: 20100401
  2. SPIRIVA [Suspect]
     Dosage: 18 MCG
     Route: 055
     Dates: start: 20100901
  3. EVISTA [Concomitant]
     Indication: BREAST CANCER
  4. ZOCOR [Concomitant]
     Indication: MYOCARDIAL INFARCTION
  5. ASPIRIN [Concomitant]
     Indication: MYOCARDIAL INFARCTION

REACTIONS (1)
  - LACRIMATION INCREASED [None]
